FAERS Safety Report 8376210-8 (Version None)
Quarter: 2012Q2

REPORT INFORMATION
  Report Type: 
  Country: None (occurrence: None)
  Receive Date: 20120522
  Receipt Date: 20120514
  Transmission Date: 20120825
  Serious: Yes (Hospitalization)
  Sender: FDA-Public Use
  Company Number: GB-ASTRAZENECA-2012SE31187

PATIENT
  Age: 32 Year
  Sex: Male
  Weight: 124 kg

DRUGS (3)
  1. VALPROATE SODIUM [Suspect]
     Dosage: DOSE OF 1000, TWO TIMES A DAY
     Route: 048
  2. CLOZARIL [Suspect]
     Indication: SCHIZOPHRENIA
     Dosage: DOSE OF 300, DAILY
     Route: 048
     Dates: start: 20120113, end: 20120401
  3. ATENOLOL [Suspect]
     Indication: TACHYCARDIA
     Route: 048

REACTIONS (1)
  - DIFFERENTIAL WHITE BLOOD CELL COUNT ABNORMAL [None]
